FAERS Safety Report 8134206-5 (Version None)
Quarter: 2012Q1

REPORT INFORMATION
  Report Type: 
  Country: None (occurrence: None)
  Receive Date: 20120214
  Receipt Date: 20120206
  Transmission Date: 20120608
  Serious: Yes (Other)
  Sender: FDA-Public Use
  Company Number: US-BAYER-2011-116346

PATIENT
  Age: 36 Year
  Sex: Female
  Weight: 86.168 kg

DRUGS (3)
  1. DROSPIRENONE AND ETHINYL ESTRADIOL [Suspect]
     Indication: ACNE
     Dosage: UNK
     Dates: start: 20080701, end: 20091201
  2. HERB COMPOUND [Concomitant]
     Indication: PAIN
     Dosage: UNK
     Dates: start: 20040101
  3. YASMIN [Suspect]
     Indication: ACNE
     Dosage: UNK
     Dates: start: 20031201, end: 20080601

REACTIONS (8)
  - PULMONARY EMBOLISM [None]
  - DEEP VEIN THROMBOSIS [None]
  - BILIARY DYSKINESIA [None]
  - MYOCARDIAL INFARCTION [None]
  - GALLBLADDER DISORDER [None]
  - CHOLECYSTITIS CHRONIC [None]
  - CEREBROVASCULAR ACCIDENT [None]
  - PAIN [None]
